FAERS Safety Report 5641741-8 (Version None)
Quarter: 2008Q1

REPORT INFORMATION
  Report Type: 
  Country: None (occurrence: None)
  Receive Date: 20080227
  Receipt Date: 20080214
  Transmission Date: 20080703
  Serious: Yes (Hospitalization, Other)
  Sender: FDA-Public Use
  Company Number: GB-AVENTIS-200811518GDDC

PATIENT
  Age: 69 Year
  Sex: Male

DRUGS (1)
  1. LANTUS [Suspect]
     Route: 058

REACTIONS (6)
  - FACIAL SPASM [None]
  - FATIGUE [None]
  - HEADACHE [None]
  - HUNGER [None]
  - NAUSEA [None]
  - VOMITING [None]
